FAERS Safety Report 11921725 (Version 1)
Quarter: 2016Q1

REPORT INFORMATION
  Report Type: Spontaneous
  Country: US (occurrence: US)
  Receive Date: 20160115
  Receipt Date: 20160115
  Transmission Date: 20160526
  Serious: No
  Sender: FDA-Public Use
  Company Number: US-BAYER-2016-008116

PATIENT
  Age: 81 Year
  Sex: Male
  Weight: 95.69 kg

DRUGS (3)
  1. PROBIOTICA [Concomitant]
     Active Substance: PROBIOTICS NOS
     Dosage: UNK
  2. PHILLIPS^ FIBER GOOD GUMMIES [Suspect]
     Active Substance: INULIN
     Indication: DYSPEPSIA
     Dosage: 1 DF, ONCE
     Route: 048
     Dates: start: 20160112, end: 20160112
  3. MIRALAX [Suspect]
     Active Substance: POLYETHYLENE GLYCOL 3350
     Indication: CONSTIPATION
     Dosage: UNK UNK, QD

REACTIONS (5)
  - Product use issue [None]
  - Diarrhoea [None]
  - Drug effect decreased [None]
  - Flatulence [None]
  - Off label use [None]

NARRATIVE: CASE EVENT DATE: 20160112
